FAERS Safety Report 6711172-8 (Version None)
Quarter: 2010Q2

REPORT INFORMATION
  Report Type: 
  Country: None (occurrence: None)
  Receive Date: 20100504
  Receipt Date: 20100504
  Transmission Date: 20101027
  Serious: Yes (Life-Threatening)
  Sender: FDA-Public Use
  Company Number: None

PATIENT
  Sex: Female
  Weight: 61.2356 kg

DRUGS (1)
  1. FEXOFENADINE [Suspect]
     Indication: SWOLLEN TONGUE
     Dosage: 180 MG 1 TAB DAILY
     Dates: start: 20090411, end: 20090420

REACTIONS (1)
  - SWOLLEN TONGUE [None]
